FAERS Safety Report 9668419 (Version 1)
Quarter: 2013Q4

REPORT INFORMATION
  Report Type: Report from Study
  Country: US (occurrence: US)
  Receive Date: 20131105
  Receipt Date: 20131105
  Transmission Date: 20140711
  Serious: Yes (Hospitalization)
  Sender: FDA-Public Use
  Company Number: US-ROCHE-1296768

PATIENT
  Age: 37 Year
  Sex: Male

DRUGS (7)
  1. CAPECITABINE [Suspect]
     Indication: RECTAL CANCER
     Route: 048
     Dates: start: 20120730, end: 20120906
  2. VELIPARIB [Suspect]
     Indication: RECTAL CANCER
     Route: 048
     Dates: start: 20120731, end: 20120908
  3. OMEPRAZOLE [Concomitant]
     Route: 065
     Dates: start: 20120802
  4. TADALAFIL [Concomitant]
     Route: 065
     Dates: start: 20110919
  5. PROCHLORPERAZINE MALEATE [Concomitant]
     Indication: NAUSEA
     Route: 065
     Dates: start: 20120730
  6. ONDANSETRON HYDROCHLORIDE [Concomitant]
     Indication: PROPHYLAXIS OF NAUSEA AND VOMITING
     Route: 065
     Dates: start: 20120730
  7. FERROUS SULPHATE [Concomitant]
     Route: 065
     Dates: start: 201207

REACTIONS (1)
  - Anastomotic complication [Not Recovered/Not Resolved]
